FAERS Safety Report 8462776-6 (Version None)
Quarter: 2012Q2

REPORT INFORMATION
  Report Type: 
  Country: None (occurrence: None)
  Receive Date: 20120625
  Receipt Date: 20120620
  Transmission Date: 20120825
  Serious: Yes (Death)
  Sender: FDA-Public Use
  Company Number: CO-ROCHE-1081200

PATIENT
  Age: 60 Year
  Sex: Male

DRUGS (1)
  1. LUCENTIS [Suspect]
     Indication: OPHTHALMOLOGIC TREATMENT
     Route: 050
     Dates: start: 20120130

REACTIONS (1)
  - DEATH [None]
